FAERS Safety Report 7156448-8 (Version None)
Quarter: 2010Q4

REPORT INFORMATION
  Report Type: 
  Country: None (occurrence: None)
  Receive Date: 20101214
  Receipt Date: 20101206
  Transmission Date: 20110411
  Serious: Yes (Hospitalization)
  Sender: FDA-Public Use
  Company Number: US-ASTRAZENECA-2008UW20267

PATIENT
  Age: 735 Month
  Sex: Female
  Weight: 88.5 kg

DRUGS (22)
  1. SYMBICORT [Suspect]
     Indication: ASTHMA
     Dosage: 2 PUFFS TWICE DAILY
     Route: 055
     Dates: start: 20070101, end: 20101014
  2. SYMBICORT [Suspect]
     Indication: MULTIPLE ALLERGIES
     Dosage: 2 PUFFS TWICE DAILY
     Route: 055
     Dates: start: 20070101, end: 20101014
  3. LISINOPRIL [Concomitant]
     Indication: HYPERTENSION
     Route: 048
  4. CARBAMAZEPINE [Concomitant]
     Indication: CONVULSION
  5. ALBUTEROL [Concomitant]
     Indication: ASTHMA
     Dosage: UNKNOWN DOSE THREE TIMES A DAY
  6. RANITIDINE [Concomitant]
     Indication: GASTROOESOPHAGEAL REFLUX DISEASE
  7. LORAZEPAM [Concomitant]
     Indication: ANXIETY
  8. MELOXICAM [Concomitant]
     Indication: ARTHRALGIA
     Dosage: 7.5 DAILY
  9. DICYCLOMINE [Concomitant]
  10. AMITRIPTYLINE [Concomitant]
     Indication: HYPOTONIA
     Dosage: 7.5 DAILY
  11. DETROL [Concomitant]
  12. NASACORT [Concomitant]
     Indication: HYPERSENSITIVITY
  13. LORATADINE [Concomitant]
     Indication: HYPERSENSITIVITY
  14. PROVENTIL [Concomitant]
     Indication: ASTHMA
  15. ESTRODIOL [Concomitant]
     Indication: HORMONE THERAPY
  16. OXYBUTYNIN [Concomitant]
     Indication: BLADDER PAIN
  17. SIMVASTATIN [Concomitant]
     Indication: HYPERCHOLESTEROLAEMIA
  18. CHOLOSTYRAMINE [Concomitant]
  19. CALCIUM [Concomitant]
  20. VITAMIN D [Concomitant]
  21. OIL OF PEPPERMINT [Concomitant]
     Indication: INFLAMMATORY BOWEL DISEASE
  22. CITALOPRAM HYDROBROMIDE [Concomitant]
     Indication: ANXIETY

REACTIONS (4)
  - ASTHMA [None]
  - DRUG INEFFECTIVE [None]
  - HIP ARTHROPLASTY [None]
  - INTENTIONAL DRUG MISUSE [None]
